FAERS Safety Report 23873313 (Version 1)
Quarter: 2024Q2

REPORT INFORMATION
  Report Type: Spontaneous
  Country: US (occurrence: None)
  Receive Date: 20240517
  Receipt Date: 20240517
  Transmission Date: 20240716
  Serious: Yes (Death)
  Sender: FDA-Public Use
  Company Number: None

PATIENT
  Age: 75 Year
  Sex: Male

DRUGS (2)
  1. SINGULAIR [Suspect]
     Active Substance: MONTELUKAST SODIUM
  2. PRAMIPEXOLE [Concomitant]
     Active Substance: PRAMIPEXOLE\PRAMIPEXOLE DIHYDROCHLORIDE

REACTIONS (15)
  - Incorrect dose administered [None]
  - Completed suicide [None]
  - Drug titration error [None]
  - Product prescribing error [None]
  - Nonspecific reaction [None]
  - Posture abnormal [None]
  - Hallucination [None]
  - Agitation [None]
  - Paranoia [None]
  - Insomnia [None]
  - Nausea [None]
  - Feeding disorder [None]
  - Urinary retention [None]
  - Abdominal discomfort [None]
  - Overdose [None]

NARRATIVE: CASE EVENT DATE: 20220901
